FAERS Safety Report 12703150 (Version 1)
Quarter: 2016Q3

REPORT INFORMATION
  Report Type: Spontaneous
  Country: US (occurrence: US)
  Receive Date: 20160831
  Receipt Date: 20160831
  Transmission Date: 20161109
  Serious: No
  Sender: FDA-Public Use
  Company Number: US-GLAXOSMITHKLINE-US2016126060

PATIENT
  Sex: Female

DRUGS (1)
  1. ALLI [Suspect]
     Active Substance: ORLISTAT
     Indication: WEIGHT LOSS DIET
     Dosage: UNK
     Dates: start: 2015

REACTIONS (5)
  - Weight increased [Unknown]
  - Steatorrhoea [Unknown]
  - Diarrhoea [Unknown]
  - Abdominal pain [Unknown]
  - Rectal discharge [Unknown]
